FAERS Safety Report 8777488 (Version 2)
Quarter: 2012Q4

REPORT INFORMATION
  Report Type: 
  Country: BR (occurrence: BR)
  Receive Date: 20120911
  Receipt Date: 20120913
  Transmission Date: 20130627
  Serious: Yes (Hospitalization)
  Sender: FDA-Public Use
  Company Number: BR-PFIZER INC-2012222671

PATIENT
  Age: 52 Year
  Sex: Female
  Weight: 49 kg

DRUGS (3)
  1. FRONTAL [Suspect]
     Indication: PHOBIA
     Dosage: 1 mg, 1x/day
     Route: 048
     Dates: start: 1997
  2. FRONTAL [Suspect]
     Indication: PANIC DISORDER
  3. FRONTAL [Suspect]
     Indication: ANXIETY

REACTIONS (2)
  - Aneurysm [Unknown]
  - Off label use [Not Recovered/Not Resolved]
